FAERS Safety Report 9402932 (Version 1)
Quarter: 2013Q3

REPORT INFORMATION
  Report Type: Spontaneous
  Country: US (occurrence: US)
  Receive Date: 20130716
  Receipt Date: 20130716
  Transmission Date: 20140515
  Serious: Yes (Other)
  Sender: FDA-Public Use
  Company Number: US-ALLERGAN-1310027US

PATIENT
  Sex: Female

DRUGS (2)
  1. RESTASIS? [Suspect]
     Indication: PRODUCT USED FOR UNKNOWN INDICATION
     Dosage: UNK
     Route: 047
  2. RESTASIS? [Suspect]
     Dosage: UNK
     Route: 047
     Dates: start: 201106, end: 201304

REACTIONS (3)
  - Cataract [Unknown]
  - Erythema [Unknown]
  - Adverse event [Unknown]
